FAERS Safety Report 26151305 (Version 1)
Quarter: 2025Q4

REPORT INFORMATION
  Report Type: Spontaneous
  Country: AU (occurrence: AU)
  Receive Date: 20251212
  Receipt Date: 20251212
  Transmission Date: 20260117
  Serious: Yes (Other)
  Sender: GLAXOSMITHKLINE
  Company Number: AU-GSKCCFAPAC-Case-02797128_AE-106304

PATIENT
  Sex: Male

DRUGS (1)
  1. VENTOLIN [Suspect]
     Active Substance: ALBUTEROL SULFATE
     Indication: Asthma
     Dosage: UNK

REACTIONS (6)
  - Lower respiratory tract infection [Unknown]
  - Irritability [Unknown]
  - Wrong technique in device usage process [Unknown]
  - Product complaint [Unknown]
  - Wrong technique in product usage process [Unknown]
  - Extra dose administered [Unknown]
